FAERS Safety Report 7543935-3 (Version None)
Quarter: 2011Q2

REPORT INFORMATION
  Report Type: 
  Country: None (occurrence: None)
  Receive Date: 20110613
  Receipt Date: 20110531
  Transmission Date: 20111010
  Serious: Yes (Other)
  Sender: FDA-Public Use
  Company Number: PHHY2011DE47985

PATIENT
  Age: 60 Year
  Sex: Male
  Weight: 58 kg

DRUGS (2)
  1. CHEMOTHERAPEUTICS,OTHER [Concomitant]
  2. ZOMETA [Suspect]
     Dosage: UNK
     Route: 065
     Dates: start: 20060601, end: 20080901

REACTIONS (2)
  - OSTEONECROSIS OF JAW [None]
  - PURULENCE [None]
